FAERS Safety Report 17257254 (Version 1)
Quarter: 2020Q1

REPORT INFORMATION
  Report Type: Report from Study
  Country: CA (occurrence: CA)
  Receive Date: 20200110
  Receipt Date: 20200110
  Transmission Date: 20200409
  Serious: No
  Sender: FDA-Public Use
  Company Number: CA-BEH-2019111111

PATIENT
  Age: 78 Year
  Sex: Female

DRUGS (3)
  1. HIZENTRA [Suspect]
     Active Substance: HUMAN IMMUNOGLOBULIN G
     Indication: PLASMA CELL MYELOMA
     Dosage: 12 GRAM, QW
     Route: 058
     Dates: start: 20190806
  2. MORPHINE [Concomitant]
     Active Substance: MORPHINE
  3. HIZENTRA [Suspect]
     Active Substance: HUMAN IMMUNOGLOBULIN G
     Indication: SECONDARY IMMUNODEFICIENCY

REACTIONS (2)
  - No adverse event [Unknown]
  - Product administration error [Unknown]
